FAERS Safety Report 23894079 (Version 1)
Quarter: 2024Q2

REPORT INFORMATION
  Report Type: Spontaneous
  Country: US (occurrence: None)
  Receive Date: 20240524
  Receipt Date: 20240524
  Transmission Date: 20240715
  Serious: No
  Sender: FDA-Public Use
  Company Number: US-ROCHE-3519362

PATIENT
  Sex: Male

DRUGS (1)
  1. OCREVUS [Suspect]
     Active Substance: OCRELIZUMAB
     Indication: Multiple sclerosis
     Dosage: THIS WAS SECOND SPLIT DOSE- MOVING FORWARD DOSE WOULD BE EVERY 6 MONTHS; ONGOING: YES
     Route: 042
     Dates: start: 20240215

REACTIONS (1)
  - Urinary tract infection [Unknown]
